FAERS Safety Report 18678296 (Version 1)
Quarter: 2020Q4

REPORT INFORMATION
  Report Type: Spontaneous
  Country: US (occurrence: US)
  Receive Date: 20201229
  Receipt Date: 20201229
  Transmission Date: 20210114
  Serious: Yes (Hospitalization, Other)
  Sender: FDA-Public Use
  Company Number: US-DRREDDYS-USA/USA/20/0130120

PATIENT
  Age: 52 Year
  Sex: Female

DRUGS (9)
  1. SODIUM CHLORIDE. [Concomitant]
     Active Substance: SODIUM CHLORIDE
     Indication: PRODUCT USED FOR UNKNOWN INDICATION
     Dosage: FLUSHING WITH NORMAL SALINE
  2. PARACETAMOL [Concomitant]
     Active Substance: ACETAMINOPHEN
     Indication: BREAST PAIN
  3. CYCLOPHOSPHAMIDE. [Suspect]
     Active Substance: CYCLOPHOSPHAMIDE
     Indication: BREAST CANCER STAGE II
     Route: 042
  4. IBUPROFEN. [Concomitant]
     Active Substance: IBUPROFEN
     Indication: BREAST PAIN
  5. PARACETAMOL [Concomitant]
     Active Substance: ACETAMINOPHEN
     Indication: ARTHRALGIA
     Dosage: AROUND-THE-CLOCK USE
  6. DOXORUBICIN HYDROCHLORIDE LIPOSOME INJECTION 20 MG/10 ML (2 MG/ML) AND [Suspect]
     Active Substance: DOXORUBICIN HYDROCHLORIDE
     Indication: BREAST CANCER STAGE II
     Dosage: INFUSION
     Route: 041
  7. IBUPROFEN. [Concomitant]
     Active Substance: IBUPROFEN
     Indication: ARTHRALGIA
  8. IBUPROFEN. [Concomitant]
     Active Substance: IBUPROFEN
     Indication: CHEST PAIN
     Dosage: AROUND-THE-CLOCK USE
  9. PARACETAMOL [Concomitant]
     Active Substance: ACETAMINOPHEN
     Indication: CHEST PAIN

REACTIONS (9)
  - Pulmonary haemorrhage [Unknown]
  - Condition aggravated [Recovering/Resolving]
  - Syncope [Recovered/Resolved]
  - Administration site extravasation [Unknown]
  - Neutropenia [Unknown]
  - Pleural effusion [Recovering/Resolving]
  - Hypotension [Unknown]
  - Dyspnoea [Not Recovered/Not Resolved]
  - Pleuritic pain [Not Recovered/Not Resolved]
